FAERS Safety Report 15986069 (Version 1)
Quarter: 2019Q1

REPORT INFORMATION
  Report Type: Spontaneous
  Country: DE (occurrence: DE)
  Receive Date: 20190220
  Receipt Date: 20190220
  Transmission Date: 20190418
  Serious: Yes (Hospitalization, Other)
  Sender: FDA-Public Use
  Company Number: DE-ALLERGAN-1906575US

PATIENT
  Age: 80 Year
  Sex: Male

DRUGS (4)
  1. TRIPTORELIN PAMOATE - BP [Suspect]
     Active Substance: TRIPTORELIN PAMOATE
     Indication: PROSTATE CANCER
     Dosage: 11.25 MG, SINGLE
     Route: 065
     Dates: start: 20180224, end: 20180224
  2. PROFACT [Concomitant]
     Active Substance: BUSERELIN ACETATE
     Dosage: UNK
     Dates: start: 2010
  3. BICALUTAMIDE. [Concomitant]
     Active Substance: BICALUTAMIDE
     Dosage: UNK
     Dates: start: 2015
  4. PROFACT [Concomitant]
     Active Substance: BUSERELIN ACETATE
     Dosage: UNK
     Dates: start: 2013

REACTIONS (3)
  - Hypertensive crisis [Unknown]
  - Hypertensive crisis [Recovered/Resolved]
  - Hypertonia [Unknown]

NARRATIVE: CASE EVENT DATE: 201806
